FAERS Safety Report 7272269-X (Version None)
Quarter: 2011Q1

REPORT INFORMATION
  Report Type: 
  Country: None (occurrence: None)
  Receive Date: 20110131
  Receipt Date: 20110131
  Transmission Date: 20110831
  Serious: Yes (Other)
  Sender: FDA-Public Use
  Company Number: None

PATIENT
  Age: 43 Year
  Sex: Female
  Weight: 65.7716 kg

DRUGS (2)
  1. SUPRAX [Suspect]
     Indication: PULMONARY CONGESTION
     Dosage: 1 TABLET 1 X A DAY PO
     Route: 048
     Dates: start: 20110121, end: 20110127
  2. SUPRAX [Suspect]
     Indication: RESPIRATORY TRACT INFECTION
     Dosage: 1 TABLET 1 X A DAY PO
     Route: 048
     Dates: start: 20110121, end: 20110127

REACTIONS (6)
  - PARAESTHESIA [None]
  - ABDOMINAL PAIN UPPER [None]
  - BLOOD PRESSURE SYSTOLIC DECREASED [None]
  - COLD SWEAT [None]
  - DECREASED APPETITE [None]
  - INSOMNIA [None]
